FAERS Safety Report 5413719-0 (Version None)
Quarter: 2007Q3

REPORT INFORMATION
  Report Type: 
  Country: None (occurrence: None)
  Receive Date: 20070814
  Receipt Date: 20070808
  Transmission Date: 20080115
  Serious: Yes (Hospitalization)
  Sender: FDA-Public Use
  Company Number: B0483243A

PATIENT
  Age: 56 Year
  Sex: Female

DRUGS (8)
  1. ZOFRAN [Suspect]
     Dosage: 8MG PER DAY
     Route: 065
     Dates: start: 20070711, end: 20070711
  2. RANIDIL [Suspect]
     Indication: PROPHYLAXIS
     Dosage: 50MG PER DAY
     Route: 042
     Dates: start: 20070711, end: 20070711
  3. DOCETAXEL [Suspect]
     Indication: CHEMOTHERAPY
     Dosage: 170MG PER DAY
     Route: 042
     Dates: start: 20070711, end: 20070711
  4. ANASTROZOLE [Concomitant]
     Dosage: 1MG PER DAY
  5. METOCLOPRAMIDE HYDROCHLORIDE [Concomitant]
     Dosage: 1MG PER DAY
  6. CEFTRIAXONE [Concomitant]
     Dosage: 2MG PER DAY
     Route: 042
  7. FLUCONAZOLE [Concomitant]
  8. LENOGRASTIM [Concomitant]

REACTIONS (3)
  - ASTHENIA [None]
  - LEUKOPENIA [None]
  - ORAL FUNGAL INFECTION [None]
